FAERS Safety Report 23361162 (Version 1)
Quarter: 2024Q1

REPORT INFORMATION
  Report Type: Spontaneous
  Country: FI (occurrence: FI)
  Receive Date: 20240103
  Receipt Date: 20240103
  Transmission Date: 20240409
  Serious: Yes (Other)
  Sender: FDA-Public Use
  Company Number: None

PATIENT
  Age: 34 Year
  Sex: Female

DRUGS (8)
  1. ADALIMUMAB [Suspect]
     Active Substance: ADALIMUMAB\ISOPROPYL ALCOHOL
     Indication: Juvenile idiopathic arthritis
     Dosage: 40 MILLIGRAM, Q2WK (40 MG EVERY 2 WEEKS)
     Route: 058
     Dates: start: 202304, end: 202309
  2. ETORICOXIB [Concomitant]
     Active Substance: ETORICOXIB
     Dosage: UNK
  3. LOPEX [Concomitant]
     Indication: Diarrhoea
     Dosage: UNK (WHEN NEEDED)
     Route: 048
     Dates: start: 2023
  4. ALBUTEROL [Concomitant]
     Active Substance: ALBUTEROL
     Dosage: UNK
  5. LEVOTHYROXINE [Concomitant]
     Active Substance: LEVOTHYROXINE
     Indication: Thyroidectomy
     Dosage: UNK (ACCORDING TO SEPARATE INSTRUCTION)
     Route: 048
     Dates: start: 2018
  6. DESLORATADINE [Concomitant]
     Active Substance: DESLORATADINE
     Dosage: UNK
  7. PULMICORT TURBUHALER [Concomitant]
     Active Substance: BUDESONIDE
     Dosage: UNK
  8. BRINTELLIX [Concomitant]
     Active Substance: VORTIOXETINE HYDROBROMIDE
     Dosage: UNK

REACTIONS (3)
  - Drug-induced liver injury [Recovering/Resolving]
  - Alanine aminotransferase increased [Recovering/Resolving]
  - Aspartate aminotransferase increased [Recovering/Resolving]

NARRATIVE: CASE EVENT DATE: 20230901
